FAERS Safety Report 6176218-7 (Version None)
Quarter: 2009Q2

REPORT INFORMATION
  Report Type: 
  Country: None (occurrence: None)
  Receive Date: 20090501
  Receipt Date: 20090423
  Transmission Date: 20091009
  Serious: Yes (Hospitalization)
  Sender: FDA-Public Use
  Company Number: A0780307A

PATIENT
  Age: 65 Year
  Sex: Female

DRUGS (5)
  1. BUPROPION HYDROCHLORIDE [Suspect]
     Indication: DEPRESSION
     Dosage: 450MG PER DAY
     Route: 048
  2. THEOPHYLLINE [Suspect]
     Indication: CHRONIC OBSTRUCTIVE PULMONARY DISEASE
     Dosage: 300MG TWICE PER DAY
     Route: 048
  3. TRAZODONE HCL [Suspect]
     Indication: SLEEP DISORDER
     Dosage: 50MG AT NIGHT
     Route: 048
  4. GABAPENTIN [Suspect]
     Dosage: 600MG THREE TIMES PER DAY
  5. INSULIN [Concomitant]

REACTIONS (6)
  - FALL [None]
  - HIP FRACTURE [None]
  - INCORRECT DOSE ADMINISTERED [None]
  - LOSS OF CONSCIOUSNESS [None]
  - PETIT MAL EPILEPSY [None]
  - TREATMENT NONCOMPLIANCE [None]
